FAERS Safety Report 17723547 (Version 10)
Quarter: 2020Q4

REPORT INFORMATION
  Report Type: Report from Study
  Country: US (occurrence: US)
  Receive Date: 20200429
  Receipt Date: 20201111
  Transmission Date: 20210113
  Serious: Yes (Other)
  Sender: FDA-Public Use
  Company Number: NVSC2020US107668

PATIENT
  Age: 68 Year
  Sex: Female

DRUGS (1)
  1. ENTRESTO [Suspect]
     Active Substance: SACUBITRIL\VALSARTAN
     Indication: CARDIAC FAILURE
     Dosage: 1 DF, BID
     Route: 048
     Dates: start: 202002

REACTIONS (25)
  - Blindness unilateral [Unknown]
  - Anxiety [Unknown]
  - Myocardial infarction [Unknown]
  - Contusion [Unknown]
  - Nervous system disorder [Unknown]
  - Nerve injury [Unknown]
  - Stress [Unknown]
  - Product dose omission issue [Not Recovered/Not Resolved]
  - Abdominal discomfort [Recovering/Resolving]
  - Depression [Recovering/Resolving]
  - Decreased appetite [Unknown]
  - Lethargy [Recovering/Resolving]
  - Malaise [Recovering/Resolving]
  - Mood swings [Unknown]
  - Cough [Unknown]
  - Vomiting [Unknown]
  - Cataract [Unknown]
  - Chest pain [Unknown]
  - Oropharyngeal pain [Unknown]
  - Weight decreased [Unknown]
  - Fatigue [Unknown]
  - Dizziness [Not Recovered/Not Resolved]
  - Suicidal ideation [Unknown]
  - Post-traumatic stress disorder [Unknown]
  - Lacrimation increased [Unknown]

NARRATIVE: CASE EVENT DATE: 202002
